APPROVED DRUG PRODUCT: OXYCODONE AND ACETAMINOPHEN
Active Ingredient: ACETAMINOPHEN; OXYCODONE HYDROCHLORIDE
Strength: 325MG;10MG
Dosage Form/Route: TABLET;ORAL
Application: A202677 | Product #002 | TE Code: AA
Applicant: ALVOGEN INC
Approved: Jul 26, 2012 | RLD: No | RS: No | Type: RX